FAERS Safety Report 25342121 (Version 2)
Quarter: 2025Q2

REPORT INFORMATION
  Report Type: Spontaneous
  Country: US (occurrence: US)
  Receive Date: 20250521
  Receipt Date: 20250605
  Transmission Date: 20250717
  Serious: Yes (Other)
  Sender: PFIZER
  Company Number: US-PFIZER INC-202500105097

PATIENT
  Age: 81 Year
  Sex: Female
  Weight: 67.12 kg

DRUGS (1)
  1. XELJANZ [Suspect]
     Active Substance: TOFACITINIB CITRATE
     Indication: Rheumatoid arthritis
     Dosage: 5 ML, 1X/DAY
     Route: 048
     Dates: start: 20160506, end: 20210521

REACTIONS (1)
  - Neoplasm malignant [Recovered/Resolved]
